FAERS Safety Report 16274382 (Version 3)
Quarter: 2019Q2

REPORT INFORMATION
  Report Type: Spontaneous
  Country: ES (occurrence: ES)
  Receive Date: 20190504
  Receipt Date: 20190527
  Transmission Date: 20190711
  Serious: Yes (Life-Threatening, Hospitalization, Other)
  Sender: FDA-Public Use
  Company Number: ES-ACCORD-125882

PATIENT
  Age: 87 Year
  Sex: Female

DRUGS (13)
  1. METHOTREXATE. [Suspect]
     Active Substance: METHOTREXATE
     Indication: PRODUCT USED FOR UNKNOWN INDICATION
     Route: 048
     Dates: start: 2001, end: 201712
  2. ATORVASTATIN [Concomitant]
     Active Substance: ATORVASTATIN
  3. RISPERIDONE. [Concomitant]
     Active Substance: RISPERIDONE
  4. OMEPRAZOLE. [Interacting]
     Active Substance: OMEPRAZOLE
     Indication: PRODUCT USED FOR UNKNOWN INDICATION
  5. METHYLPREDNISOLONE. [Concomitant]
     Active Substance: METHYLPREDNISOLONE
     Indication: RHEUMATOID ARTHRITIS
  6. DENOSUMAB [Concomitant]
     Active Substance: DENOSUMAB
  7. ALLOPURINOL. [Concomitant]
     Active Substance: ALLOPURINOL
  8. FUROSEMIDE. [Concomitant]
     Active Substance: FUROSEMIDE
  9. LORMETAZEPAM [Concomitant]
     Active Substance: LORMETAZEPAM
  10. FOLIC ACID. [Concomitant]
     Active Substance: FOLIC ACID
     Indication: RHEUMATOID ARTHRITIS
  11. ACETYLSALICYLIC ACID [Interacting]
     Active Substance: ASPIRIN
     Indication: PRODUCT USED FOR UNKNOWN INDICATION
  12. CALCIFEDIOL [Concomitant]
     Active Substance: CALCIFEDIOL
  13. GALANTAMINE/GALANTAMINE HYDROBROMIDE [Concomitant]

REACTIONS (10)
  - Medication error [Unknown]
  - Pancytopenia [Recovered/Resolved]
  - Respiratory disorder [Recovered/Resolved]
  - Hepatitis [Recovered/Resolved]
  - Mucosal inflammation [Recovered/Resolved]
  - Toxicity to various agents [Unknown]
  - Drug interaction [Unknown]
  - Tachycardia [Recovered/Resolved]
  - Overdose [Unknown]
  - Hypotension [Recovered/Resolved]

NARRATIVE: CASE EVENT DATE: 2017
